FAERS Safety Report 16030340 (Version 1)
Quarter: 2019Q2

REPORT INFORMATION
  Report Type: Spontaneous
  Country: US (occurrence: US)
  Receive Date: 20190304
  Receipt Date: 20190304
  Transmission Date: 20190711
  Serious: No
  Sender: FDA-Public Use
  Company Number: None

PATIENT
  Age: 65 Year
  Sex: Female
  Weight: 74.25 kg

DRUGS (7)
  1. FISH OIL-1 [Concomitant]
  2. GLUCOSAMINE WITH MSM [Concomitant]
  3. CITALOPRAM [Suspect]
     Active Substance: CITALOPRAM HYDROBROMIDE
     Indication: DEPRESSION
     Dosage: ?          QUANTITY:1 TABLET(S);?
     Route: 048
     Dates: start: 20190214, end: 20190304
  4. CALCIUM WITH MAGNESIUM-1 [Concomitant]
  5. CONDROITIN-1 [Concomitant]
  6. PROBIOTICS-1 [Concomitant]
  7. MULTIVITAMIN -2 [Concomitant]

REACTIONS (2)
  - Product substitution issue [None]
  - Anger [None]
